FAERS Safety Report 19407774 (Version 2)
Quarter: 2021Q2

REPORT INFORMATION
  Report Type: Report from Study
  Country: US (occurrence: US)
  Receive Date: 20210611
  Receipt Date: 20210622
  Transmission Date: 20210717
  Serious: Yes (Hospitalization, Other)
  Sender: FDA-Public Use
  Company Number: US-BRISTOL-MYERS SQUIBB COMPANY-BMS-2021-054854

PATIENT
  Age: 70 Year
  Sex: Female
  Weight: 99.7 kg

DRUGS (8)
  1. CORTISONE [Concomitant]
     Active Substance: CORTISONE
     Indication: PRODUCT USED FOR UNKNOWN INDICATION
     Route: 065
  2. DIAZEPAM. [Concomitant]
     Active Substance: DIAZEPAM
     Indication: PRODUCT USED FOR UNKNOWN INDICATION
     Dosage: Q12H, AS NEEDED
     Route: 065
  3. OXYCODONE [Concomitant]
     Active Substance: OXYCODONE
     Indication: PRODUCT USED FOR UNKNOWN INDICATION
     Dosage: 5 MILLIGRAM
     Route: 065
  4. ACYCLOVIR [ACICLOVIR] [Concomitant]
     Active Substance: ACYCLOVIR
     Indication: PRODUCT USED FOR UNKNOWN INDICATION
     Route: 065
  5. TOPROL XL [Concomitant]
     Active Substance: METOPROLOL SUCCINATE
     Indication: PRODUCT USED FOR UNKNOWN INDICATION
     Dosage: 25 MILLIGRAM, QD
     Route: 065
  6. MAGNESIUM [Concomitant]
     Active Substance: MAGNESIUM
     Indication: PRODUCT USED FOR UNKNOWN INDICATION
     Dosage: UNK
     Route: 065
  7. APIXABAN [Suspect]
     Active Substance: APIXABAN
     Indication: CEREBROVASCULAR ACCIDENT PROPHYLAXIS
     Dosage: 5 MILLIGRAM, BID
     Route: 048
     Dates: start: 20201115
  8. TYLENOL [Concomitant]
     Active Substance: ACETAMINOPHEN
     Indication: PRODUCT USED FOR UNKNOWN INDICATION
     Dosage: 325
     Route: 065

REACTIONS (26)
  - Syncope [Unknown]
  - Stress [Unknown]
  - Joint swelling [Unknown]
  - Platelet count decreased [Unknown]
  - Haemoglobin decreased [Unknown]
  - Product taste abnormal [Unknown]
  - Infection [Unknown]
  - Musculoskeletal stiffness [Unknown]
  - Disturbance in attention [Unknown]
  - Poor quality sleep [Unknown]
  - Memory impairment [Unknown]
  - Pyrexia [Unknown]
  - Lung disorder [Unknown]
  - Confusional state [Unknown]
  - Pneumonia aspiration [Unknown]
  - Rheumatoid arthritis [Unknown]
  - Arthralgia [Unknown]
  - Cardiac disorder [Unknown]
  - Herpes zoster [Unknown]
  - Depressed mood [Unknown]
  - Insomnia [Unknown]
  - Haemorrhage subcutaneous [Unknown]
  - Gait inability [Unknown]
  - Condition aggravated [Unknown]
  - Rash [Unknown]
  - Eye disorder [Unknown]

NARRATIVE: CASE EVENT DATE: 202012
